FAERS Safety Report 9308277 (Version 1)
Quarter: 2013Q2

REPORT INFORMATION
  Report Type: Report from Study
  Country: CA (occurrence: CA)
  Receive Date: 20130524
  Receipt Date: 20130524
  Transmission Date: 20140414
  Serious: Yes (Other)
  Sender: FDA-Public Use
  Company Number: PHHY2013CA051941

PATIENT
  Sex: Female

DRUGS (3)
  1. ACLASTA [Suspect]
     Indication: OSTEOPOROSIS
     Dosage: UNK
     Route: 042
     Dates: start: 20100713
  2. ACLASTA [Suspect]
     Dosage: UNK
     Route: 042
     Dates: start: 20110623
  3. ACLASTA [Suspect]
     Dosage: UNK
     Route: 042
     Dates: start: 20120622

REACTIONS (1)
  - Blood creatinine decreased [Unknown]
